FAERS Safety Report 5351184-2 (Version None)
Quarter: 2007Q2

REPORT INFORMATION
  Report Type: 
  Country: None (occurrence: None)
  Receive Date: 20070608
  Receipt Date: 20070529
  Transmission Date: 20071010
  Serious: Yes (Hospitalization)
  Sender: FDA-Public Use
  Company Number: GB-PFIZER INC-2007042686

PATIENT
  Age: 33 Year
  Sex: Female

DRUGS (5)
  1. CLINDAMYCIN HYDROCHLORIDE [Suspect]
  2. ACYCLOVIR [Suspect]
  3. COMBIVIR [Suspect]
  4. EFAVIRENZ [Suspect]
  5. PYRIMETHAMINE TAB [Suspect]

REACTIONS (1)
  - PANCYTOPENIA [None]
